FAERS Safety Report 15745595 (Version 1)
Quarter: 2018Q4

REPORT INFORMATION
  Report Type: Spontaneous
  Country: GB (occurrence: GB)
  Receive Date: 20181220
  Receipt Date: 20181220
  Transmission Date: 20190205
  Serious: Yes (Death, Hospitalization, Other)
  Sender: FDA-Public Use
  Company Number: GB-SHR-GB-2006-004752

PATIENT
  Age: 68 Year
  Sex: Male
  Weight: 100 kg

DRUGS (7)
  1. ACICLOVIR [Concomitant]
     Active Substance: ACYCLOVIR
     Indication: INFECTION PROPHYLAXIS
     Dosage: UNK UNK,QD
     Route: 048
     Dates: start: 200511, end: 200603
  2. LANSOPRAZOLE. [Concomitant]
     Active Substance: LANSOPRAZOLE
     Indication: DYSPEPSIA
     Dosage: UNK UNK,QD
     Route: 048
     Dates: start: 200511, end: 200603
  3. PREDNISOLONE. [Concomitant]
     Active Substance: PREDNISOLONE
     Indication: CHRONIC LYMPHOCYTIC LEUKAEMIA
     Dosage: UNK UNK,UNK
     Route: 048
     Dates: start: 200511, end: 200603
  4. ALEMTUZUMAB [Suspect]
     Active Substance: ALEMTUZUMAB
     Indication: CHRONIC LYMPHOCYTIC LEUKAEMIA
     Dosage: UNK UNK,TIW CUMULATIVE DOSAGE: 1380 MG
     Route: 058
     Dates: start: 20051114, end: 20060303
  5. BUMETANIDE. [Concomitant]
     Active Substance: BUMETANIDE
     Indication: JOINT SWELLING
     Dosage: UNK UNK,QD
     Route: 048
     Dates: start: 200501, end: 200503
  6. AMILORIDE [Concomitant]
     Active Substance: AMILORIDE
     Indication: JOINT SWELLING
     Dosage: UNK UNK,UNK
     Route: 048
  7. ITRACONAZOLE. [Concomitant]
     Active Substance: ITRACONAZOLE
     Indication: INFECTION PROPHYLAXIS
     Dosage: UNK UNK,QD
     Route: 048
     Dates: start: 200511

REACTIONS (3)
  - Nosocomial infection [Fatal]
  - Malignant neoplasm progression [Fatal]
  - Atrioventricular block second degree [Not Recovered/Not Resolved]

NARRATIVE: CASE EVENT DATE: 20060303
